FAERS Safety Report 9884989 (Version 1)
Quarter: 2014Q1

REPORT INFORMATION
  Report Type: Spontaneous
  Country: US (occurrence: None)
  Receive Date: 20140207
  Receipt Date: 20140207
  Transmission Date: 20141002
  Serious: Yes (Hospitalization)
  Sender: FDA-Public Use
  Company Number: None

PATIENT
  Age: 56 Year
  Sex: Female

DRUGS (12)
  1. PROGRAF [Suspect]
     Indication: LIVER TRANSPLANT
     Dosage: 4 CAPSULES BID PO
     Route: 048
     Dates: start: 20131102
  2. PROGRAF [Suspect]
     Indication: POSTOPERATIVE CARE
     Dosage: 4 CAPSULES BID PO
     Route: 048
     Dates: start: 20131102
  3. CELLCEPT [Suspect]
     Dosage: 4 CAPSULES BID PO
     Route: 048
  4. PREDNISONE [Concomitant]
  5. ASA [Concomitant]
  6. PROTONIX [Concomitant]
  7. MAG-OXIDE [Concomitant]
  8. KEPPRA [Concomitant]
  9. PRAVACHOL [Concomitant]
  10. LANTUS [Concomitant]
  11. HUMALOG [Concomitant]
  12. HUMULIN [Concomitant]

REACTIONS (1)
  - Convulsion [None]
